FAERS Safety Report 4330978-6 (Version None)
Quarter: 2004Q1

REPORT INFORMATION
  Report Type: 
  Country: None (occurrence: None)
  Receive Date: 20040329
  Receipt Date: 20040318
  Transmission Date: 20041129
  Serious: Yes (Life-Threatening)
  Sender: FDA-Public Use
  Company Number: 7656

PATIENT
  Age: 67 Year
  Sex: Female

DRUGS (4)
  1. METHOTREXATE [Suspect]
     Indication: RHEUMATOID ARTHRITIS
     Dosage: 5 MG WEEKLY PO
     Route: 048
     Dates: start: 19931216, end: 20040124
  2. CO-PROXAMOL [Concomitant]
  3. MELOXICAM [Concomitant]
  4. RANITIDINE [Concomitant]

REACTIONS (2)
  - ACCIDENTAL OVERDOSE [None]
  - PANCYTOPENIA [None]
